FAERS Safety Report 4527353-8 (Version None)
Quarter: 2004Q4

REPORT INFORMATION
  Report Type: 
  Country: None (occurrence: None)
  Receive Date: 20041130
  Receipt Date: 20040923
  Transmission Date: 20050328
  Serious: No
  Sender: FDA-Public Use
  Company Number: FABR-10793

PATIENT
  Age: 28 Year
  Sex: Male
  Weight: 48 kg

DRUGS (3)
  1. FABRAZYME [Suspect]
     Indication: FABRY'S DISEASE
     Dosage: 48 MG IV
     Route: 042
  2. ASPIRIN [Concomitant]
  3. OXYCOCET [Concomitant]

REACTIONS (1)
  - CEREBROVASCULAR ACCIDENT [None]
